FAERS Safety Report 7998405 (Version 7)
Quarter: 2012Q4

REPORT INFORMATION
  Report Type: 
  Country: US (occurrence: US)
  Receive Date: 20110620
  Receipt Date: 20121019
  Transmission Date: 20130627
  Serious: Yes (Life-Threatening, Hospitalization)
  Sender: FDA-Public Use
  Company Number: US-US-EMD SERONO, INC.-7064414

PATIENT
  Age: 66 None
  Sex: Female
  Weight: 79 kg

DRUGS (3)
  1. REBIF [Suspect]
     Indication: MULTIPLE SCLEROSIS
     Route: 058
     Dates: start: 20050628
  2. REBIF [Suspect]
     Route: 058
     Dates: start: 200708
  3. REBIF [Suspect]
     Route: 058

REACTIONS (10)
  - Pneumonia viral [Recovered/Resolved]
  - Cerebrovascular accident [Recovered/Resolved]
  - Lymphoedema [Not Recovered/Not Resolved]
  - Anuria [Recovering/Resolving]
  - Chest wall mass [Not Recovered/Not Resolved]
  - Spinal compression fracture [Recovering/Resolving]
  - Blood pressure increased [Unknown]
  - Fall [Unknown]
  - Blood cholesterol increased [Unknown]
  - Multiple sclerosis [Not Recovered/Not Resolved]
